FAERS Safety Report 8337233-8 (Version None)
Quarter: 2012Q2

REPORT INFORMATION
  Report Type: 
  Country: None (occurrence: None)
  Receive Date: 20120504
  Receipt Date: 20120426
  Transmission Date: 20120825
  Serious: Yes (Other)
  Sender: FDA-Public Use
  Company Number: JP-NOVOPROD-350340

PATIENT
  Age: 53 Year
  Sex: Female
  Weight: 62 kg

DRUGS (8)
  1. LEVEMIR [Suspect]
     Dosage: 12 U, QD
     Route: 058
     Dates: start: 20120225, end: 20120409
  2. METFORMIN HCL [Concomitant]
     Indication: TYPE 2 DIABETES MELLITUS
     Dosage: 1500MG/PO
     Route: 048
     Dates: start: 20120225
  3. METFORMIN HCL [Concomitant]
     Dosage: 1500MG/PO
     Dates: start: 20120225
  4. LEVEMIR [Suspect]
     Indication: TYPE 2 DIABETES MELLITUS
     Dosage: 16 U, QD
     Route: 058
     Dates: start: 20090225
  5. ZETIA [Concomitant]
     Dosage: 10 MG
  6. GLYBURIDE [Concomitant]
     Indication: TYPE 2 DIABETES MELLITUS
     Dosage: 7.5 MG, QD
     Route: 048
     Dates: start: 20120225
  7. SITAGLIPTIN PHOSPHATE [Concomitant]
     Indication: TYPE 2 DIABETES MELLITUS
     Dosage: 50 MG, QD
     Route: 048
     Dates: start: 20120225
  8. PITAVASTATIN CALCIUM [Concomitant]
     Dosage: 1 MG, QD
     Route: 048
     Dates: start: 20120225

REACTIONS (1)
  - MENINGIOMA BENIGN [None]
